FAERS Safety Report 7901502-3 (Version None)
Quarter: 2011Q4

REPORT INFORMATION
  Report Type: 
  Country: None (occurrence: None)
  Receive Date: 20111108
  Receipt Date: 20111102
  Transmission Date: 20120403
  Serious: Yes (Life-Threatening)
  Sender: FDA-Public Use
  Company Number: DE-CELGENEUS-062-21880-11103322

PATIENT
  Age: 59 Year
  Sex: Male
  Weight: 101 kg

DRUGS (10)
  1. GRANOCYTE [Concomitant]
     Route: 058
     Dates: start: 20111016
  2. ACYCLOVIR [Concomitant]
     Indication: ANTIVIRAL PROPHYLAXIS
     Dosage: 1200 MILLIGRAM
     Route: 065
     Dates: start: 20110615
  3. NOVALGIN [Concomitant]
     Indication: ANALGESIC THERAPY
     Dosage: 50 DROPS
     Route: 065
     Dates: start: 20110615
  4. FRAXIPARIN [Concomitant]
     Indication: THROMBOSIS PROPHYLAXIS
     Dosage: .6 MILLIGRAM
     Route: 058
     Dates: start: 20110615
  5. CARBOPLATIN [Suspect]
     Route: 065
     Dates: start: 20111012, end: 20111014
  6. DEXAMETHASONE [Suspect]
     Indication: MULTIPLE MYELOMA
     Route: 065
     Dates: start: 20110907
  7. ETOPOSIDE [Suspect]
     Route: 065
     Dates: start: 20111012, end: 20111014
  8. REVLIMID [Suspect]
     Indication: MULTIPLE MYELOMA
     Route: 048
     Dates: start: 20110907
  9. ADRIAMYCIN PFS [Suspect]
     Indication: MULTIPLE MYELOMA
     Route: 065
     Dates: start: 20110907
  10. COTRIM DS [Concomitant]
     Indication: ANTIBIOTIC PROPHYLAXIS
     Dosage: 411.4286 MILLIGRAM
     Route: 065
     Dates: start: 20110615

REACTIONS (2)
  - PYREXIA [None]
  - SEPSIS [None]
